FAERS Safety Report 5978515-4 (Version None)
Quarter: 2008Q4

REPORT INFORMATION
  Report Type: 
  Country: None (occurrence: None)
  Receive Date: 20081126
  Receipt Date: 20081120
  Transmission Date: 20090506
  Serious: No
  Sender: FDA-Public Use
  Company Number: APP200801168

PATIENT
  Age: 26 Year
  Sex: Female
  Weight: 82 kg

DRUGS (15)
  1. HEPARIN SODIUM INJECTION [Suspect]
     Indication: FACTOR V LEIDEN MUTATION
     Dosage: 5000 USP UNITS
     Dates: start: 20080827, end: 20080831
  2. HEPARIN SODIUM INJECTION [Suspect]
     Indication: FACTOR V LEIDEN MUTATION
     Dosage: 5000 USP UNITS
     Dates: start: 20080901
  3. ENOXAPARIN SODIUM [Suspect]
     Indication: FACTOR V LEIDEN MUTATION
     Dosage: 40 ML, 1 IN 1 D, INJECTION; 80 ML, 1 IN 1 D, INJECTON
     Dates: start: 20080601, end: 20080827
  4. ENOXAPARIN SODIUM [Suspect]
     Indication: FACTOR V LEIDEN MUTATION
     Dosage: 40 ML, 1 IN 1 D, INJECTION; 80 ML, 1 IN 1 D, INJECTON
     Dates: start: 20080901
  5. SYNTHROID [Concomitant]
  6. CYMBALTA [Concomitant]
  7. VALTREX [Concomitant]
  8. ASCORBIC ACID [Concomitant]
  9. BIOTIN [Concomitant]
  10. TOCOPHEROL (TOCOPHEROL) [Concomitant]
  11. NICOTINIC ACID [Concomitant]
  12. RETINOL (RETINOL) [Concomitant]
  13. MINERAL NOS [Concomitant]
  14. VITAMIN B NOS (VITAMIN B NOS) [Concomitant]
  15. VITAMIN D NOS (PRENATAL VITAMINS) [Concomitant]

REACTIONS (2)
  - DRUG EXPOSURE DURING PREGNANCY [None]
  - NO ADVERSE EVENT [None]
